FAERS Safety Report 19512256 (Version 8)
Quarter: 2021Q4

REPORT INFORMATION
  Report Type: Report from Study
  Country: US (occurrence: US)
  Receive Date: 20210709
  Receipt Date: 20211215
  Transmission Date: 20220303
  Serious: Yes (Hospitalization, Other)
  Sender: FDA-Public Use
  Company Number: NVSC2021US150801

PATIENT
  Sex: Female

DRUGS (3)
  1. PIQRAY [Suspect]
     Active Substance: ALPELISIB
     Indication: Breast cancer
     Dosage: 300 MG, QD
     Route: 048
     Dates: start: 202106
  2. PIQRAY [Suspect]
     Active Substance: ALPELISIB
     Dosage: 150 MG, QD
     Route: 048
     Dates: start: 202106
  3. PIQRAY [Suspect]
     Active Substance: ALPELISIB
     Dosage: 150 MG, QD
     Route: 048
     Dates: start: 20210807

REACTIONS (26)
  - Ascites [Recovering/Resolving]
  - Blood sodium increased [Not Recovered/Not Resolved]
  - Paracentesis [Unknown]
  - Blood creatinine increased [Recovering/Resolving]
  - Renal failure [Recovering/Resolving]
  - Abdominal distension [Recovering/Resolving]
  - Tumour marker decreased [Unknown]
  - Immunodeficiency [Unknown]
  - Blood pressure increased [Unknown]
  - Hypotension [Recovering/Resolving]
  - Fistula [Unknown]
  - Pain [Unknown]
  - Influenza like illness [Unknown]
  - Constipation [Unknown]
  - Oropharyngeal pain [Unknown]
  - Upper-airway cough syndrome [Unknown]
  - Urine abnormality [Unknown]
  - Fluid retention [Unknown]
  - Cystitis [Unknown]
  - Pyrexia [Unknown]
  - Hyperglycaemia [Unknown]
  - Diarrhoea [Not Recovered/Not Resolved]
  - Nausea [Unknown]
  - Dyspepsia [Unknown]
  - Fatigue [Unknown]
  - Vomiting [Unknown]
